FAERS Safety Report 5802307-X (Version None)
Quarter: 2008Q3

REPORT INFORMATION
  Report Type: 
  Country: None (occurrence: None)
  Receive Date: 20080707
  Receipt Date: 20080624
  Transmission Date: 20090109
  Serious: Yes (Death, Life-Threatening, Hospitalization, Other)
  Sender: FDA-Public Use
  Company Number: FR-ROCHE-561414

PATIENT
  Sex: Male
  Weight: 79 kg

DRUGS (5)
  1. PEGASYS [Suspect]
     Dosage: DRUG PERMANENTLY DISCONTINUED ON 28 APRIL 2008
     Route: 058
     Dates: start: 20080123, end: 20080423
  2. RO 4588161 (HCV POLYMERASE INHIBITOR) [Suspect]
     Dosage: DRUG PERMANENTLY DISCONTINUED ON 28 APRIL 2008.
     Route: 048
     Dates: start: 20080123, end: 20080428
  3. RIBAVIRIN [Suspect]
     Dosage: DRUG PERMANENTLY DISCONTINUED ON 28 APRIL 2008.
     Route: 048
     Dates: start: 20080123, end: 20080428
  4. ATENOLOL [Concomitant]
     Dates: start: 20040101, end: 20080429
  5. ACETAMINOPHEN [Concomitant]
     Dates: start: 20080425, end: 20080427

REACTIONS (4)
  - LYMPHOPENIA [None]
  - MULTI-ORGAN FAILURE [None]
  - SEPTIC SHOCK [None]
  - VARICELLA [None]
